FAERS Safety Report 4985509-4 (Version None)
Quarter: 2006Q2

REPORT INFORMATION
  Report Type: 
  Country: None (occurrence: None)
  Receive Date: 20060428
  Receipt Date: 20050629
  Transmission Date: 20061013
  Serious: No
  Sender: FDA-Public Use
  Company Number: 2005/04/1991

PATIENT
  Age: 67 Year
  Sex: Female

DRUGS (5)
  1. FLOVENT [Suspect]
     Indication: DRUG USE FOR UNKNOWN INDICATION
  2. ALBUTEROL SULFATE AUTOHALER [Suspect]
     Indication: ASTHMA
     Route: 055
  3. PREDNISONE [Concomitant]
  4. INTAL [Concomitant]
  5. HEART MEDICATION [Concomitant]

REACTIONS (4)
  - ANXIETY [None]
  - DRUG INEFFECTIVE [None]
  - OVERDOSE [None]
  - PALPITATIONS [None]
